FAERS Safety Report 4718553-2 (Version None)
Quarter: 2005Q3

REPORT INFORMATION
  Report Type: 
  Country: None (occurrence: None)
  Receive Date: 20050720
  Receipt Date: 20050711
  Transmission Date: 20060218
  Serious: Yes (Other)
  Sender: FDA-Public Use
  Company Number: 200512043JP

PATIENT
  Age: 53 Year
  Sex: Female

DRUGS (2)
  1. TAXOTERE [Suspect]
     Route: 041
     Dates: start: 20050701, end: 20050701
  2. PARAPLATIN [Concomitant]
     Dates: start: 20050701, end: 20050701

REACTIONS (1)
  - PANCREATITIS ACUTE [None]
